FAERS Safety Report 23535187 (Version 2)
Quarter: 2024Q2

REPORT INFORMATION
  Report Type: Spontaneous
  Country: VN (occurrence: VN)
  Receive Date: 20240218
  Receipt Date: 20240529
  Transmission Date: 20240716
  Serious: Yes (Hospitalization)
  Sender: FDA-Public Use
  Company Number: VN-002147023-NVSC2023VN262012

PATIENT
  Age: 28 Year
  Sex: Male

DRUGS (10)
  1. CYCLOSPORINE [Suspect]
     Active Substance: CYCLOSPORINE
     Indication: Graft versus host disease
     Dosage: UNK
     Route: 041
  2. METHOTREXATE [Suspect]
     Active Substance: METHOTREXATE
     Indication: Graft versus host disease
     Dosage: UNK
     Route: 065
  3. RUXOLITINIB [Suspect]
     Active Substance: RUXOLITINIB
     Indication: Graft versus host disease
     Dosage: 10 MG, QD
     Route: 065
  4. RUXOLITINIB [Suspect]
     Active Substance: RUXOLITINIB
     Dosage: 15 MG, QD 15 MG, QD (ALTERNATING)
     Route: 065
  5. RUXOLITINIB [Suspect]
     Active Substance: RUXOLITINIB
     Dosage: 20 MG, QD
     Route: 065
  6. RUXOLITINIB [Suspect]
     Active Substance: RUXOLITINIB
     Dosage: UNK, QD UNK UNK, QD (10 MG ALTERNATING 15MG)
     Route: 065
  7. PREDNISOLONE [Concomitant]
     Active Substance: PREDNISOLONE
     Dosage: 1 DF 1 DOSAGE FORM (1 TABLET /DAY) (ON MONDAY, WEDNESDAY, FRIDAY AND SUNDAY)
     Route: 065
  8. PREDNISOLONE [Concomitant]
     Active Substance: PREDNISOLONE
     Indication: Product used for unknown indication
     Dosage: 20 MG, QD
     Route: 065
  9. PROGRAF [Concomitant]
     Active Substance: TACROLIMUS
     Indication: Product used for unknown indication
     Dosage: 1 MG, QD
     Route: 065
  10. SULFAMETHOXAZOLE AND TRIMETHOPRIM [Concomitant]
     Active Substance: SULFAMETHOXAZOLE\TRIMETHOPRIM
     Indication: Product used for unknown indication
     Dosage: 480 MG 480 MG (ON TUESDAY, SATURDAY)
     Route: 065

REACTIONS (37)
  - Graft overgrowth [Unknown]
  - Throat irritation [Unknown]
  - Acute graft versus host disease in skin [Unknown]
  - Acute graft versus host disease in eye [Unknown]
  - Acute graft versus host disease oral [Unknown]
  - Dry skin [Unknown]
  - Nail dystrophy [Unknown]
  - Nail ridging [Unknown]
  - Onychoclasis [Unknown]
  - Dry mouth [Unknown]
  - Oral mucosa atrophy [Unknown]
  - Oral mucosal erythema [Unknown]
  - Oral pain [Unknown]
  - Dry eye [Unknown]
  - Weight decreased [Unknown]
  - Globulins decreased [Unknown]
  - Productive cough [Unknown]
  - Respiratory failure [Unknown]
  - Aspergillus infection [Unknown]
  - Respiratory tract inflammation [Unknown]
  - Respiratory tract infection [Recovering/Resolving]
  - Stridor [Recovered/Resolved]
  - Rhonchi [Unknown]
  - Off label use [Unknown]
  - Blood bilirubin increased [Unknown]
  - Photophobia [Unknown]
  - Skin hyperpigmentation [Unknown]
  - Blepharitis [Unknown]
  - Hepatic enzyme increased [Unknown]
  - Conjunctivitis [Unknown]
  - Mouth ulceration [Unknown]
  - Pneumonia [Unknown]
  - Cytomegalovirus infection [Unknown]
  - Eosinophilia [Unknown]
  - Cough [Unknown]
  - Erythema [Unknown]
  - COVID-19 [Unknown]
